FAERS Safety Report 15781608 (Version 3)
Quarter: 2020Q1

REPORT INFORMATION
  Report Type: Spontaneous
  Country: US (occurrence: US)
  Receive Date: 20190102
  Receipt Date: 20200218
  Transmission Date: 20200409
  Serious: Yes (Other)
  Sender: FDA-Public Use
  Company Number: US-PFIZER INC-2018500108

PATIENT
  Age: 73 Year
  Sex: Female
  Weight: 72 kg

DRUGS (2)
  1. XELJANZ XR [Suspect]
     Active Substance: TOFACITINIB CITRATE
     Indication: COMPRESSION FRACTURE
  2. XELJANZ XR [Suspect]
     Active Substance: TOFACITINIB CITRATE
     Indication: PSORIATIC ARTHROPATHY
     Dosage: 11 MG, UNK

REACTIONS (9)
  - Cellulitis [Recovering/Resolving]
  - Skin discolouration [Unknown]
  - Pain [Unknown]
  - Arthralgia [Unknown]
  - Gait inability [Unknown]
  - Lymphoedema [Recovering/Resolving]
  - Peripheral swelling [Unknown]
  - Joint stiffness [Unknown]
  - Memory impairment [Unknown]
